FAERS Safety Report 4387549-5 (Version None)
Quarter: 2004Q2

REPORT INFORMATION
  Report Type: 
  Country: None (occurrence: None)
  Receive Date: 20040630
  Receipt Date: 20040506
  Transmission Date: 20050107
  Serious: No
  Sender: FDA-Public Use
  Company Number: US-GLAXOSMITHKLINE-A0509833A

PATIENT
  Age: 72 Year
  Sex: Female

DRUGS (5)
  1. ADVAIR HFA [Suspect]
     Dosage: 1PUFF TWICE PER DAY
     Route: 055
     Dates: start: 20021001, end: 20040401
  2. TEQUIN [Concomitant]
  3. ULTRAM [Concomitant]
  4. ALBUTEROL [Concomitant]
  5. PREMARIN [Concomitant]

REACTIONS (6)
  - DYSPNOEA [None]
  - HOARSENESS [None]
  - INSOMNIA [None]
  - MUSCLE CRAMP [None]
  - MUSCLE SPASMS [None]
  - RASH [None]
